FAERS Safety Report 9182053 (Version 1)
Quarter: 2013Q1

REPORT INFORMATION
  Report Type: Spontaneous
  Country: AU (occurrence: None)
  Receive Date: 20120626
  Receipt Date: 20120626
  Transmission Date: 20140127
  Serious: Yes (Hospitalization, Other)
  Sender: FDA-Public Use
  Company Number: 2012-00517

PATIENT
  Age: 52 Year
  Sex: Female

DRUGS (17)
  1. VENLAFAXINE [Suspect]
  2. TRAMADOL [Suspect]
  3. METOCLOPRAMIDE ( UNKNOWN) [Concomitant]
  4. DIAZEPAM (UNKNOWN) [Concomitant]
  5. CONJUGATED ESTROGENS (PREMARIN) (UNKNOWN) [Concomitant]
  6. PRAVASTATIN (UNKNOWN) [Concomitant]
  7. ATORVASTATIN (UNKNOWN) [Concomitant]
  8. IRBESARTAN (UNKNOWN) [Concomitant]
  9. TENORMIN (UNKNOWN) [Concomitant]
  10. VALACYCLOVIR (UNKNOWN) [Concomitant]
  11. FLUTICASONE PROPIONATE (SERETIDE) (UNKNOWN) [Concomitant]
  12. PENICILIN (UNKNOWN) [Concomitant]
  13. CEPHALEXIN (UNKNOWN) [Concomitant]
  14. ERYTHROMYCIN (UNKNOWN) [Concomitant]
  15. CELECOXIB (UNKNOWN) [Concomitant]
  16. OROXINE (UNKNOWN) [Concomitant]
  17. LOVASTATIN (UNKNOWN) [Concomitant]

REACTIONS (3)
  - Suicide attempt [None]
  - Akathisia [None]
  - Homicide [None]
